FAERS Safety Report 4345799-8 (Version None)
Quarter: 2004Q2

REPORT INFORMATION
  Report Type: 
  Country: None (occurrence: None)
  Receive Date: 20040421
  Receipt Date: 20040409
  Transmission Date: 20050107
  Serious: Yes (Death)
  Sender: FDA-Public Use
  Company Number: 04P-056-0252691-00

PATIENT
  Age: 61 Year
  Sex: Male

DRUGS (8)
  1. HUMIRA [Suspect]
     Indication: RHEUMATOID ARTHRITIS
     Dosage: 40 MG, SUBCUTANEOUS
     Route: 058
     Dates: start: 20030416, end: 20040203
  2. KETOPROFEN [Concomitant]
  3. PREDNISONE [Concomitant]
  4. FOLIC ACID [Concomitant]
  5. COLECALCIFEROL [Concomitant]
  6. METHOTREXATE [Concomitant]
  7. OMEPRAZOLE [Concomitant]
  8. OROCAL D3 [Concomitant]

REACTIONS (10)
  - CREPITATIONS [None]
  - HAEMOPTYSIS [None]
  - HERPES VIRUS INFECTION [None]
  - METASTASES TO KIDNEY [None]
  - METASTASES TO LIVER [None]
  - NEOPLASM MALIGNANT [None]
  - PRODUCTIVE COUGH [None]
  - PULMONARY MASS [None]
  - PYREXIA [None]
  - RIB FRACTURE [None]
